FAERS Safety Report 24267033 (Version 3)
Quarter: 2025Q3

REPORT INFORMATION
  Report Type: Report from Study
  Country: US (occurrence: US)
  Receive Date: 20240830
  Receipt Date: 20250925
  Transmission Date: 20251020
  Serious: Yes (Hospitalization, Other)
  Sender: ALEXION PHARMACEUTICALS
  Company Number: 2024A191871

PATIENT
  Age: 68 Year
  Sex: Male
  Weight: 78.458 kg

DRUGS (6)
  1. BREZTRI [Suspect]
     Active Substance: BUDESONIDE\FORMOTEROL\GLYCOPYRROLATE
     Indication: Chronic obstructive pulmonary disease
     Dates: start: 20240807, end: 20240810
  2. RAMIPRIL [Concomitant]
     Active Substance: RAMIPRIL
     Route: 065
  3. ELIQUIS [Concomitant]
     Active Substance: APIXABAN
     Route: 065
  4. DONEPEZIL [Concomitant]
     Active Substance: DONEPEZIL
     Route: 065
  5. JARDIANCE [Concomitant]
     Active Substance: EMPAGLIFLOZIN
     Route: 065
  6. MEMANTINE [Concomitant]
     Active Substance: MEMANTINE
     Route: 065

REACTIONS (11)
  - Muscular weakness [Unknown]
  - Chills [Unknown]
  - Pain [Unknown]
  - Hypertension [Unknown]
  - Decreased appetite [Unknown]
  - Urinary incontinence [Unknown]
  - Tremor [Unknown]
  - Cerebrovascular accident [Unknown]
  - Drug ineffective [Unknown]
  - Lung adenocarcinoma stage IV [Unknown]
  - Metastases to bone [Unknown]

NARRATIVE: CASE EVENT DATE: 20240810
